FAERS Safety Report 10060707 (Version 2)
Quarter: 2014Q2

REPORT INFORMATION
  Report Type: Report from Study
  Country: JP (occurrence: JP)
  Receive Date: 20140404
  Receipt Date: 20140425
  Transmission Date: 20141212
  Serious: Yes (Death)
  Sender: FDA-Public Use
  Company Number: JP-ASTRAZENECA-2014SE23039

PATIENT
  Age: 75 Year
  Sex: Male
  Weight: 75 kg

DRUGS (6)
  1. NEXIUM [Suspect]
     Indication: PROPHYLAXIS AGAINST GASTROINTESTINAL ULCER
     Route: 048
     Dates: start: 20130730, end: 20130919
  2. CELECOX [Concomitant]
     Indication: BACK PAIN
     Route: 048
     Dates: start: 20130703, end: 20130919
  3. DIOVAN [Concomitant]
     Route: 048
     Dates: end: 20140108
  4. MEVALOTIN [Concomitant]
     Route: 048
     Dates: end: 20140108
  5. ZYLORIC [Concomitant]
     Route: 048
     Dates: end: 20140108
  6. MYONABASE [Concomitant]
     Route: 048
     Dates: start: 20130703, end: 20140108

REACTIONS (1)
  - Road traffic accident [Fatal]
